FAERS Safety Report 20717656 (Version 4)
Quarter: 2022Q3

REPORT INFORMATION
  Report Type: Report from Study
  Country: US (occurrence: US)
  Receive Date: 20220417
  Receipt Date: 20220830
  Transmission Date: 20221026
  Serious: Yes (Hospitalization, Other)
  Sender: FDA-Public Use
  Company Number: US-ABBVIE-22K-163-4355545-00

PATIENT
  Sex: Female

DRUGS (4)
  1. HUMIRA [Suspect]
     Active Substance: ADALIMUMAB
     Indication: Crohn^s disease
     Dosage: CITRATE FREE
     Route: 058
  2. PFIZER-BIONTECH COVID-19 VACCINE [Concomitant]
     Active Substance: TOZINAMERAN
     Indication: COVID-19 immunisation
     Dosage: FIRST DOSE
     Route: 030
     Dates: start: 20210410, end: 20210410
  3. PFIZER-BIONTECH COVID-19 VACCINE [Concomitant]
     Active Substance: TOZINAMERAN
     Dosage: SECOND DOSE
     Route: 030
     Dates: start: 20210430, end: 20210430
  4. PFIZER-BIONTECH COVID-19 VACCINE [Concomitant]
     Active Substance: TOZINAMERAN
     Dosage: THIRD DOSE?BOOSTER VACCINE
     Route: 030
     Dates: start: 20211101, end: 20211101

REACTIONS (20)
  - Blood magnesium decreased [Recovering/Resolving]
  - Haemoglobin decreased [Recovering/Resolving]
  - Pulmonary oedema [Recovering/Resolving]
  - Blood potassium decreased [Recovering/Resolving]
  - Fall [Recovering/Resolving]
  - Fall [Recovered/Resolved]
  - Foot fracture [Not Recovered/Not Resolved]
  - Red blood cell count decreased [Recovering/Resolving]
  - White blood cell count decreased [Recovering/Resolving]
  - Hepatic cirrhosis [Recovering/Resolving]
  - Asthenia [Recovering/Resolving]
  - Haemorrhage [Unknown]
  - Splenomegaly [Recovering/Resolving]
  - Haemorrhoids [Recovering/Resolving]
  - Hypophagia [Not Recovered/Not Resolved]
  - Constipation [Unknown]
  - Adenovirus infection [Recovering/Resolving]
  - Dehydration [Recovering/Resolving]
  - Vomiting [Recovering/Resolving]
  - Crohn^s disease [Recovering/Resolving]

NARRATIVE: CASE EVENT DATE: 20220101
